FAERS Safety Report 15387869 (Version 3)
Quarter: 2019Q3

REPORT INFORMATION
  Report Type: Report from Study
  Country: None (occurrence: CA)
  Receive Date: 20180914
  Receipt Date: 20190717
  Transmission Date: 20191004
  Serious: Yes (Other)
  Sender: FDA-Public Use
  Company Number: CA-ABBVIE-17K-028-2202349-00

PATIENT
  Sex: Female

DRUGS (2)
  1. HUMIRA [Suspect]
     Active Substance: ADALIMUMAB
     Indication: CROHN^S DISEASE
     Route: 058
     Dates: start: 20090102, end: 201710
  2. HUMIRA [Suspect]
     Active Substance: ADALIMUMAB
     Route: 058
     Dates: start: 2018

REACTIONS (8)
  - Foetal heart rate deceleration abnormality [Recovered/Resolved]
  - Caesarean section [Unknown]
  - Intestinal resection [Unknown]
  - Exposure during pregnancy [Unknown]
  - Intestinal anastomosis [Unknown]
  - Umbilical cord around neck [Recovered/Resolved]
  - Infrequent bowel movements [Not Recovered/Not Resolved]
  - Live birth [Unknown]

NARRATIVE: CASE EVENT DATE: 2010
